FAERS Safety Report 7478980-X (Version None)
Quarter: 2011Q2

REPORT INFORMATION
  Report Type: 
  Country: None (occurrence: None)
  Receive Date: 20110513
  Receipt Date: 20110505
  Transmission Date: 20111010
  Serious: Yes (Other)
  Sender: FDA-Public Use
  Company Number: PHHY2011US37447

PATIENT
  Sex: Female

DRUGS (6)
  1. GILENYA [Suspect]
     Indication: RELAPSING-REMITTING MULTIPLE SCLEROSIS
     Dosage: 0.5 MG, QD
     Route: 048
     Dates: start: 20110429
  2. PRILOSEC [Concomitant]
     Indication: GASTROOESOPHAGEAL REFLUX DISEASE
     Dosage: UNK
     Route: 048
  3. ZYRTEC [Concomitant]
     Indication: HYPERSENSITIVITY
     Dosage: UNK
     Route: 048
  4. TRIAMTERENE AND HYDROCHLOROTHIAZID [Concomitant]
     Indication: SWELLING
     Dosage: UNK
     Route: 048
  5. MIRALAX [Concomitant]
     Indication: CONSTIPATION
     Dosage: UNK
     Route: 048
  6. NEURONTIN [Concomitant]
     Indication: PAIN
     Dosage: UNK
     Route: 048

REACTIONS (4)
  - ERYTHEMA [None]
  - PARAESTHESIA [None]
  - HEART RATE DECREASED [None]
  - PRURITUS [None]
